FAERS Safety Report 4311195-2 (Version None)
Quarter: 2004Q1

REPORT INFORMATION
  Report Type: 
  Country: None (occurrence: None)
  Receive Date: 20040301
  Receipt Date: 20040115
  Transmission Date: 20041129
  Serious: No
  Sender: FDA-Public Use
  Company Number: WAES 0401USA01187

PATIENT
  Age: 70 Year
  Sex: Female

DRUGS (5)
  1. ZETIA [Suspect]
     Dosage: 10MG/UNK/PO
     Route: 048
     Dates: start: 20040106, end: 20040107
  2. LOPRESSOR [Concomitant]
  3. PRAVACHOL [Concomitant]
  4. SYNTHROID [Concomitant]
  5. ALBUTEROL [Concomitant]

REACTIONS (4)
  - DIZZINESS [None]
  - HEADACHE [None]
  - NAUSEA [None]
  - PALPITATIONS [None]
